FAERS Safety Report 5725915-3 (Version None)
Quarter: 2008Q2

REPORT INFORMATION
  Report Type: 
  Country: None (occurrence: None)
  Receive Date: 20080429
  Receipt Date: 20080414
  Transmission Date: 20081010
  Serious: Yes (Death, Hospitalization, Other)
  Sender: FDA-Public Use
  Company Number: 47378

PATIENT
  Age: 17 Year
  Sex: Male

DRUGS (2)
  1. DAUNORUBICIN HYDROCHLORIDE [Suspect]
     Indication: ACUTE LYMPHOCYTIC LEUKAEMIA
  2. METHOTREXATE [Suspect]

REACTIONS (11)
  - ACUTE RESPIRATORY DISTRESS SYNDROME [None]
  - ASPERGILLOSIS [None]
  - BACTERIA BLOOD IDENTIFIED [None]
  - FUNGAL INFECTION [None]
  - INFECTION [None]
  - LUNG INFECTION [None]
  - MUCOSAL INFLAMMATION [None]
  - MYALGIA [None]
  - NEUTROPENIA [None]
  - RASH PAPULAR [None]
  - STAPHYLOCOCCAL INFECTION [None]
